FAERS Safety Report 16363748 (Version 1)
Quarter: 2019Q2

REPORT INFORMATION
  Report Type: Spontaneous
  Country: TR (occurrence: TR)
  Receive Date: 20190528
  Receipt Date: 20190528
  Transmission Date: 20190711
  Serious: Yes (Other)
  Sender: FDA-Public Use
  Company Number: PHHY2019TR119624

PATIENT
  Age: 42 Year
  Sex: Male

DRUGS (1)
  1. CANDESARTAN+HYDROCHLOROTHIAZIDE [Suspect]
     Active Substance: CANDESARTAN CILEXETIL\HYDROCHLOROTHIAZIDE
     Indication: HYPERTENSION
     Route: 065

REACTIONS (5)
  - Excessive granulation tissue [Unknown]
  - Lichen planus [Unknown]
  - Pruritus [Unknown]
  - Rash papular [Recovering/Resolving]
  - Hyperkeratosis [Unknown]
